FAERS Safety Report 5951569-7 (Version None)
Quarter: 2008Q4

REPORT INFORMATION
  Report Type: 
  Country: None (occurrence: None)
  Receive Date: 20081113
  Receipt Date: 20081104
  Transmission Date: 20090506
  Serious: Yes (Other)
  Sender: FDA-Public Use
  Company Number: PHHY2008DE23491

PATIENT
  Sex: Male
  Weight: 99 kg

DRUGS (2)
  1. EXFORGE [Suspect]
     Indication: ESSENTIAL HYPERTENSION
     Dosage: 1 DF, QD
     Dates: start: 20080409
  2. ENALAPRIL MALEATE [Concomitant]
     Dosage: 20 MG/DAY

REACTIONS (4)
  - INTERVERTEBRAL DISC PROTRUSION [None]
  - MASSAGE [None]
  - OSTEOARTHRITIS [None]
  - REHABILITATION THERAPY [None]
